FAERS Safety Report 14226835 (Version 2)
Quarter: 2017Q4

REPORT INFORMATION
  Report Type: Spontaneous
  Country: US (occurrence: US)
  Receive Date: 20171127
  Receipt Date: 20171220
  Transmission Date: 20180321
  Serious: No
  Sender: FDA-Public Use
  Company Number: US-GLAXOSMITHKLINE-US2017GSK178311

PATIENT
  Age: 61 Year
  Sex: Female
  Weight: 72.56 kg

DRUGS (2)
  1. SUMATRIPTAN (SUMATRIPTAN SUCCINATE) SOLUTION FOR INJECTION IN PRE-FILL [Suspect]
     Active Substance: SUMATRIPTAN
     Indication: HEADACHE
     Dosage: 6 MG, PRN (1 AS NEEDED OR 2ND 2 HOURS LATER IF NEEDED)
  2. WELLBUTRIN [Suspect]
     Active Substance: BUPROPION HYDROCHLORIDE
     Indication: PRODUCT USED FOR UNKNOWN INDICATION
     Dosage: UNK

REACTIONS (3)
  - Product quality issue [Unknown]
  - Drug hypersensitivity [Unknown]
  - Nausea [Unknown]

NARRATIVE: CASE EVENT DATE: 20171108
